FAERS Safety Report 10735092 (Version 1)
Quarter: 2015Q1

REPORT INFORMATION
  Report Type: Spontaneous
  Country: US (occurrence: US)
  Receive Date: 20150124
  Receipt Date: 20150124
  Transmission Date: 20150721
  Serious: No
  Sender: FDA-Public Use
  Company Number: US-ASTRAZENECA-2014SE97458

PATIENT
  Age: 2660 Week
  Sex: Female
  Weight: 49.9 kg

DRUGS (5)
  1. RHINOCORT [Suspect]
     Active Substance: BUDESONIDE
     Indication: MULTIPLE ALLERGIES
     Route: 045
  2. RHINOCORT [Suspect]
     Active Substance: BUDESONIDE
     Indication: SINUSITIS
     Route: 045
  3. LEVOTHYROXINE [Concomitant]
     Active Substance: LEVOTHYROXINE
     Indication: THYROID DISORDER
     Route: 048
     Dates: start: 2012
  4. RHINOCORT [Suspect]
     Active Substance: BUDESONIDE
     Indication: MULTIPLE ALLERGIES
     Route: 045
     Dates: start: 2011
  5. RHINOCORT [Suspect]
     Active Substance: BUDESONIDE
     Indication: SINUSITIS
     Route: 045
     Dates: start: 2011

REACTIONS (13)
  - Hypersensitivity [Unknown]
  - Nasal discomfort [Unknown]
  - Headache [Unknown]
  - Oral pruritus [Unknown]
  - Cough [Unknown]
  - Throat irritation [Unknown]
  - Eye swelling [Unknown]
  - Intentional product misuse [Recovered/Resolved]
  - Dyspnoea [Unknown]
  - Nasal oedema [Unknown]
  - Lacrimation increased [Unknown]
  - Oropharyngeal pain [Unknown]
  - Nasal congestion [Unknown]

NARRATIVE: CASE EVENT DATE: 2014
